FAERS Safety Report 5903358-7 (Version None)
Quarter: 2008Q3

REPORT INFORMATION
  Report Type: 
  Country: None (occurrence: None)
  Receive Date: 20080930
  Receipt Date: 20080918
  Transmission Date: 20090109
  Serious: Yes (Congenital Anomaly)
  Sender: FDA-Public Use
  Company Number: US-KINGPHARMUSA00001-K200801111

PATIENT
  Sex: Female
  Weight: 1.4 kg

DRUGS (1)
  1. TAPAZOLE [Suspect]
     Dosage: UNK, UNK
     Route: 064

REACTIONS (3)
  - CONGENITAL ABSENCE OF BILE DUCTS [None]
  - DRUG EXPOSURE DURING PREGNANCY [None]
  - JAUNDICE NEONATAL [None]
